FAERS Safety Report 8202580-7 (Version None)
Quarter: 2012Q1

REPORT INFORMATION
  Report Type: 
  Country: None (occurrence: None)
  Receive Date: 20120312
  Receipt Date: 20120307
  Transmission Date: 20120608
  Serious: Yes (Hospitalization)
  Sender: FDA-Public Use
  Company Number: CZ-ABBOTT-12P-217-0901250-00

PATIENT
  Sex: Male
  Weight: 82 kg

DRUGS (15)
  1. PREDNISONE [Concomitant]
     Dates: start: 20111106, end: 20111112
  2. ASACOL [Concomitant]
     Indication: PRODUCT USED FOR UNKNOWN INDICATION
  3. URSOSAN [Concomitant]
     Indication: PRODUCT USED FOR UNKNOWN INDICATION
  4. ALUMINUM HYDROXIDE AND MAGNESIUM TRISILICATE [Concomitant]
     Indication: PRODUCT USED FOR UNKNOWN INDICATION
  5. PREDNISONE [Concomitant]
     Indication: PRODUCT USED FOR UNKNOWN INDICATION
     Dates: start: 20111023, end: 20111029
  6. PREDNISONE [Concomitant]
     Dates: start: 20111113, end: 20111119
  7. PREDNISONE [Concomitant]
     Dates: start: 20111120, end: 20111126
  8. FERROSI SULFAS HYDRICUS, ACIDUM ASCORBICUM (SORBIFER DURULES) [Concomitant]
     Indication: PRODUCT USED FOR UNKNOWN INDICATION
  9. HUMIRA [Suspect]
     Indication: RHEUMATOID ARTHRITIS
     Route: 058
  10. PREDNISONE [Concomitant]
     Dates: start: 20111030, end: 20111105
  11. ALGIFEN [Concomitant]
     Indication: PRODUCT USED FOR UNKNOWN INDICATION
  12. PANTOPRAZOLE [Suspect]
     Indication: PRODUCT USED FOR UNKNOWN INDICATION
  13. MESALAMINE [Concomitant]
     Indication: PRODUCT USED FOR UNKNOWN INDICATION
  14. SOLU-MEDROL [Concomitant]
     Indication: PRODUCT USED FOR UNKNOWN INDICATION
  15. VIGANTOL [Concomitant]
     Indication: PRODUCT USED FOR UNKNOWN INDICATION

REACTIONS (11)
  - VIRAL INFECTION [None]
  - DERMATITIS PSORIASIFORM [None]
  - SINUS HEADACHE [None]
  - HAEMORRHOIDS [None]
  - PROCTALGIA [None]
  - INFLAMMATION [None]
  - PERIANAL ERYTHEMA [None]
  - EAR PAIN [None]
  - SKIN DISCOLOURATION [None]
  - COLITIS ULCERATIVE [None]
  - HAEMATOCHEZIA [None]
